FAERS Safety Report 25807814 (Version 1)
Quarter: 2025Q3

REPORT INFORMATION
  Report Type: Spontaneous
  Country: EU (occurrence: EU)
  Receive Date: 20250916
  Receipt Date: 20250916
  Transmission Date: 20251021
  Serious: Yes (Other)
  Sender: PFIZER
  Company Number: EU-PFIZER INC-202500180790

PATIENT
  Age: 2 Year
  Sex: Male
  Weight: 14.3 kg

DRUGS (4)
  1. VORICONAZOLE [Interacting]
     Active Substance: VORICONAZOLE
     Indication: Aspergillus infection
     Dosage: 9 MG/KG, 2X/DAY (9 MG/KG (FREQ:12 H; LOADING DOSE)
     Route: 042
     Dates: start: 2023, end: 2023
  2. VORICONAZOLE [Interacting]
     Active Substance: VORICONAZOLE
     Dosage: 8 MG/KG, 2X/DAY (8 MG/KG (FREQ:12 H;MAINTENANCE DOSE))
     Route: 042
     Dates: start: 2023, end: 2023
  3. VORICONAZOLE [Interacting]
     Active Substance: VORICONAZOLE
     Dosage: 14 MG/KG, 2X/DAY (14 MG/KG/12 HOURS (200 MG/12 HOURS))
     Route: 042
     Dates: start: 2023, end: 2023
  4. PROPOFOL [Interacting]
     Active Substance: PROPOFOL
     Indication: Sedative therapy
     Dates: start: 2023, end: 2023

REACTIONS (3)
  - Drug interaction [Recovered/Resolved]
  - Drug level increased [Recovered/Resolved]
  - Drug ineffective [Unknown]

NARRATIVE: CASE EVENT DATE: 20230101
